FAERS Safety Report 9649323 (Version 2)
Quarter: 2014Q2

REPORT INFORMATION
  Report Type: Spontaneous
  Country: US (occurrence: None)
  Receive Date: 20131018
  Receipt Date: 20140421
  Transmission Date: 20141212
  Serious: No
  Sender: FDA-Public Use
  Company Number: AEGR000108

PATIENT
  Age: 54 Year
  Sex: Male
  Weight: 83.9 kg

DRUGS (11)
  1. JUXTAPID [Suspect]
     Indication: TYPE IIA HYPERLIPIDAEMIA
     Dates: start: 201305, end: 2013
  2. ZETIA (EZETIMIBE) [Concomitant]
  3. ASPIRIN (ACETYLSAILCYLIC ACID) [Concomitant]
  4. BACLOFEN (BACLOFEN) [Concomitant]
  5. ZANAFLEX (TIZANIDINE HYDROCHLORIDE) [Concomitant]
  6. DIAZEPAM (DIAZEPAM) [Concomitant]
  7. PREVACID (LANSOPRAZOLE) [Concomitant]
  8. ZANTAC (RANITIDINE HYDROCHLORIDE) [Concomitant]
  9. DITROPAN (OXYBUTYNIN HYDROCHLORIDE) [Concomitant]
  10. LORTAB (HYDROCODONE BITARTRATE, PARACETAMOL) [Concomitant]
  11. COUMADIN (WARFARIN SODIUM) [Concomitant]

REACTIONS (3)
  - Diarrhoea [None]
  - Nausea [None]
  - Abdominal pain [None]
